FAERS Safety Report 10233939 (Version 1)
Quarter: 2014Q1

REPORT INFORMATION
  Report Type: Spontaneous
  Country: US (occurrence: None)
  Receive Date: 20140306
  Receipt Date: 20140306
  Transmission Date: 20141002
  Serious: Yes (Hospitalization, Other)
  Sender: FDA-Public Use
  Company Number: 163-21880-13113442

PATIENT
  Age: 63 Year
  Sex: Female
  Weight: 56.7 kg

DRUGS (14)
  1. REVLIMID (LENALIDOMIDE) (25 MILLIGRAM, CAPSULES) [Suspect]
     Indication: PLASMA CELL MYELOMA
     Route: 048
     Dates: start: 200902
  2. DEXAMETHASONE (DEXAMETHASONE) [Concomitant]
  3. AMLODIPINE-BENAZEPRIL (AMLODIPINE W/BENAZEPRIL) [Concomitant]
  4. DIGOXIN (DIGOXIN) [Concomitant]
  5. IBUPROFEN (IBUPROFEN) [Concomitant]
  6. IMODIUM A-D (LOPERAMIDE HYDROCHLORIDE) [Concomitant]
  7. OXYCODONE/ACETAMINOPHEN (OXYCOCET) [Concomitant]
  8. TRAMADOL HCT (TRAMADOL) [Concomitant]
  9. FENTANYL (FENTANYL) [Concomitant]
  10. AZITHROMYCIN (AZITHROMYCIN) [Concomitant]
  11. METHYLPREDNISOLONE (METHYLPREDNISOLONE) [Concomitant]
  12. MEGESTROL ACETATE (MEGESTROL ACETATE) [Concomitant]
  13. ONGLYZA (SAXAGLIPTIN HYDROCHLORIDE) [Concomitant]
  14. NEURONTIN (GABAPENTIN) [Concomitant]

REACTIONS (1)
  - Neuropathy peripheral [None]
